FAERS Safety Report 5170298-3 (Version None)
Quarter: 2006Q4

REPORT INFORMATION
  Report Type: 
  Country: None (occurrence: None)
  Receive Date: 20061204
  Receipt Date: 20061127
  Transmission Date: 20070319
  Serious: Yes (Other)
  Sender: FDA-Public Use
  Company Number: GXKR2006IT07679

PATIENT
  Age: 58 Year
  Sex: Male

DRUGS (6)
  1. PAMIDRONATE (NGX (PAMIDRONATE) [Suspect]
     Indication: MULTIPLE MYELOMA
     Dosage: 90 MG, QMO; INTRAVENOUS
     Route: 042
  2. PREDNISONE [Suspect]
     Indication: MULTIPLE MYELOMA
     Dosage: QMO, ORAL
     Route: 048
  3. ZOLEDRONIC ACID [Suspect]
     Indication: MULTIPLE MYELOMA
     Dosage: 4MG, QMO; INTRAVENOUS
     Route: 042
  4. MELPHALAN (MELPHALAN) [Suspect]
     Indication: MULTIPLE MYELOMA
     Dosage: QMO, ORAL
     Route: 048
  5. NAPROXEN [Concomitant]
  6. KETOROLAC TROMETHAMINE [Concomitant]

REACTIONS (8)
  - BONE DISORDER [None]
  - FISTULA [None]
  - IMPAIRED HEALING [None]
  - INFECTION [None]
  - LOCAL SWELLING [None]
  - OSTEONECROSIS [None]
  - PAIN [None]
  - PURULENT DISCHARGE [None]
